FAERS Safety Report 11611231 (Version 1)
Quarter: 2015Q4

REPORT INFORMATION
  Report Type: Spontaneous
  Country: DE (occurrence: DE)
  Receive Date: 20151008
  Receipt Date: 20151008
  Transmission Date: 20160304
  Serious: Yes (Other)
  Sender: FDA-Public Use
  Company Number: PHHY2015DE120207

PATIENT
  Sex: Male

DRUGS (1)
  1. LEPONEX [Suspect]
     Active Substance: CLOZAPINE
     Indication: PRODUCT USED FOR UNKNOWN INDICATION
     Route: 065

REACTIONS (4)
  - Dizziness [Not Recovered/Not Resolved]
  - Pilonidal cyst [Unknown]
  - Drug interaction [Not Recovered/Not Resolved]
  - Overweight [Recovered/Resolved]

NARRATIVE: CASE EVENT DATE: 2007
